FAERS Safety Report 8681162 (Version 3)
Quarter: 2013Q1

REPORT INFORMATION
  Report Type: Report from Study
  Country: US (occurrence: US)
  Receive Date: 20120725
  Receipt Date: 20130117
  Transmission Date: 20140127
  Serious: Yes (Hospitalization, Other)
  Sender: FDA-Public Use
  Company Number: US-009507513-2012SP016676

PATIENT
  Age: 48 None
  Sex: Female
  Weight: 85.71 kg

DRUGS (9)
  1. PEG-INTRON [Suspect]
     Indication: HEPATITIS C
     Dosage: 150 MICROGRAM, UNKNOWN
     Route: 065
     Dates: start: 20120207, end: 20121016
  2. RIBAVIRIN [Suspect]
     Indication: HEPATITIS C
     Dosage: 600 MG, UNKNOWN
     Route: 065
     Dates: start: 20120207, end: 20121023
  3. VICTRELIS [Suspect]
     Indication: HEPATITIS C
     Dosage: 2400 MG, UNKNOWN
     Route: 065
     Dates: start: 20120307, end: 20121023
  4. AMBIEN [Concomitant]
     Indication: SLEEP DISORDER
     Dosage: UNK UNK, HS
     Route: 065
  5. FERROUS SULFATE [Concomitant]
     Indication: ANAEMIA
     Dosage: UNK UNK, UNKNOWN
     Route: 065
  6. GEODON [Concomitant]
     Indication: PRODUCT USED FOR UNKNOWN INDICATION
     Dosage: UPDATE (23-APR-2012)
     Route: 065
  7. PROMETHAZINE [Concomitant]
     Indication: PRODUCT USED FOR UNKNOWN INDICATION
     Dosage: UPDATE (23-APR-2012) : TID/PRN
     Route: 065
     Dates: start: 20120328
  8. PROZAC [Concomitant]
     Indication: PRODUCT USED FOR UNKNOWN INDICATION
     Dosage: UPDATE (23-APR-2012)
     Route: 065
  9. PRILOSEC [Concomitant]
     Indication: PRODUCT USED FOR UNKNOWN INDICATION
     Dosage: UPDATE (23-APR-2012)
     Route: 065

REACTIONS (23)
  - Haemoglobin decreased [Recovering/Resolving]
  - Pain in extremity [Unknown]
  - Dysgeusia [Unknown]
  - Bone pain [Unknown]
  - Dysgeusia [Unknown]
  - Oral discomfort [Unknown]
  - Pain [Unknown]
  - Influenza like illness [Unknown]
  - Malaise [Unknown]
  - Stomatitis [Unknown]
  - Dry mouth [Unknown]
  - Decreased appetite [Unknown]
  - Weight decreased [Unknown]
  - Nausea [Unknown]
  - Fatigue [Unknown]
  - Memory impairment [Unknown]
  - Gastrointestinal disorder [Unknown]
  - Gastrointestinal haemorrhage [Unknown]
  - Anaemia [Unknown]
  - Hypotension [Unknown]
  - Fatigue [Unknown]
  - Nervous system disorder [Unknown]
  - Oral disorder [Unknown]
